FAERS Safety Report 6241553-0 (Version None)
Quarter: 2009Q2

REPORT INFORMATION
  Report Type: 
  Country: None (occurrence: None)
  Receive Date: 20090623
  Receipt Date: 20031009
  Transmission Date: 20091009
  Serious: Yes (Hospitalization)
  Sender: FDA-Public Use
  Company Number: TR-ROCHE-349970

PATIENT
  Sex: Male
  Weight: 62 kg

DRUGS (34)
  1. DACLIZUMAB [Suspect]
     Route: 042
  2. MYCOPHENOLATE MOFETIL [Suspect]
     Route: 048
     Dates: start: 20030831
  3. MYCOPHENOLATE MOFETIL [Suspect]
     Route: 048
     Dates: start: 20030920
  4. MYCOPHENOLATE MOFETIL [Suspect]
     Route: 048
     Dates: start: 20031007
  5. MYCOPHENOLATE MOFETIL [Suspect]
     Route: 048
     Dates: start: 20031015
  6. MYCOPHENOLATE MOFETIL [Suspect]
     Route: 048
     Dates: start: 20031020
  7. MYCOPHENOLATE MOFETIL [Suspect]
     Route: 048
     Dates: start: 20031111
  8. MYCOPHENOLATE MOFETIL [Suspect]
     Route: 048
     Dates: start: 20031117
  9. CYCLOSPORINE [Suspect]
     Route: 048
     Dates: start: 20030901
  10. CYCLOSPORINE [Suspect]
     Route: 048
     Dates: start: 20030917
  11. CYCLOSPORINE [Suspect]
     Route: 048
     Dates: start: 20030929
  12. CYCLOSPORINE [Suspect]
     Route: 048
     Dates: start: 20031016
  13. CYCLOSPORINE [Suspect]
     Route: 048
     Dates: start: 20031022
  14. CYCLOSPORINE [Suspect]
     Route: 048
     Dates: start: 20031215
  15. CYCLOSPORINE [Suspect]
     Route: 048
     Dates: start: 20040513
  16. SIROLIMUS [Suspect]
     Route: 065
  17. TACROLIMUS [Suspect]
     Route: 065
  18. PREDNISOLONE [Suspect]
     Route: 048
     Dates: start: 20040219
  19. METHYLPREDNISOLONE [Suspect]
     Dosage: FORM REPORTED: VIAL
     Route: 042
     Dates: start: 20030901, end: 20030901
  20. METHYLPREDNISOLONE [Suspect]
     Route: 042
     Dates: start: 20030902, end: 20030907
  21. METHYLPREDNISOLONE [Suspect]
     Route: 048
     Dates: start: 20030908
  22. METHYLPREDNISOLONE [Suspect]
     Route: 048
     Dates: start: 20030912
  23. METHYLPREDNISOLONE [Suspect]
     Route: 048
     Dates: start: 20030917
  24. METHYLPREDNISOLONE [Suspect]
     Route: 048
     Dates: start: 20030922
  25. METHYLPREDNISOLONE [Suspect]
     Route: 048
     Dates: start: 20030929
  26. METHYLPREDNISOLONE [Suspect]
     Route: 048
     Dates: start: 20031002, end: 20040219
  27. ACYCLOVIR [Concomitant]
     Route: 048
     Dates: start: 20030912, end: 20031017
  28. ACYCLOVIR [Concomitant]
     Route: 048
     Dates: start: 20031215, end: 20031222
  29. DILTIAZEM [Concomitant]
     Route: 048
     Dates: start: 20030902
  30. DILTIAZEM [Concomitant]
     Route: 048
     Dates: start: 20030905
  31. DOXAZOSIN MESYLATE [Concomitant]
     Route: 048
     Dates: start: 20030908
  32. LISINOPRIL [Concomitant]
     Route: 048
     Dates: start: 20030906
  33. OFLOXACIN [Concomitant]
     Route: 048
     Dates: start: 20030901, end: 20030905
  34. SULFAMETHOXAZOLE AND TRIMETHOPRIM [Concomitant]
     Dosage: DRUG: TRIMETHOPRIM-SULPHAMETAXAZOLE
     Route: 048
     Dates: start: 20030905

REACTIONS (2)
  - CYTOMEGALOVIRUS INFECTION [None]
  - PNEUMONIA [None]
